FAERS Safety Report 7350940-9 (Version None)
Quarter: 2011Q1

REPORT INFORMATION
  Report Type: 
  Country: None (occurrence: None)
  Receive Date: 20110314
  Receipt Date: 20110311
  Transmission Date: 20110831
  Serious: No
  Sender: FDA-Public Use
  Company Number: US-PFIZER INC-2011054747

PATIENT
  Sex: Male
  Weight: 121.9 kg

DRUGS (7)
  1. LYRICA [Suspect]
     Indication: DIABETIC NEUROPATHY
     Dosage: 150 MG, 3X/DAY
     Route: 048
  2. GABAPENTIN [Concomitant]
     Dosage: 400 MG, 3X/DAY
     Route: 048
  3. NOVOLOG [Concomitant]
     Indication: DIABETES MELLITUS
     Dosage: 15 IU, 3X/DAY
     Route: 058
  4. OXYCODONE [Concomitant]
     Indication: PAIN IN EXTREMITY
     Dosage: 5 MG, AS NEEDED
  5. LIPITOR [Concomitant]
     Indication: HYPERTENSION
     Dosage: 40 MG, 1X/DAY
     Route: 048
  6. LANTUS [Concomitant]
     Indication: DIABETES MELLITUS
     Dosage: 20 IU, 1X/DAY
     Route: 058
  7. AMLODIPINE [Concomitant]
     Indication: HYPERTENSION
     Dosage: UNK

REACTIONS (2)
  - DRUG INEFFECTIVE [None]
  - OEDEMA PERIPHERAL [None]
